FAERS Safety Report 20145460 (Version 1)
Quarter: 2021Q4

REPORT INFORMATION
  Report Type: Spontaneous
  Country: CN (occurrence: CN)
  Receive Date: 20211203
  Receipt Date: 20211203
  Transmission Date: 20220303
  Serious: Yes (Other)
  Sender: FDA-Public Use
  Company Number: CN-PFIZER INC-202101630470

PATIENT
  Age: 71 Year
  Sex: Male
  Weight: 100 kg

DRUGS (5)
  1. INLYTA [Suspect]
     Active Substance: AXITINIB
     Indication: Symptomatic treatment
     Dosage: 5.000 MG, 2X/DAY
     Route: 048
     Dates: start: 20210903, end: 20211104
  2. CAMRELIZUMAB [Concomitant]
     Active Substance: CAMRELIZUMAB
     Indication: Symptomatic treatment
     Dosage: 200 MG, 1X/DAY
     Dates: start: 20210903, end: 20210903
  3. CAMRELIZUMAB [Concomitant]
     Active Substance: CAMRELIZUMAB
     Dosage: 200 MG, 1X/DAY
     Dates: start: 20210916, end: 20210916
  4. CAMRELIZUMAB [Concomitant]
     Active Substance: CAMRELIZUMAB
     Dosage: 200 MG, 1X/DAY
     Dates: start: 20210929, end: 20210929
  5. CAMRELIZUMAB [Concomitant]
     Active Substance: CAMRELIZUMAB
     Dosage: 200 MG, 1X/DAY
     Route: 041
     Dates: start: 20211021, end: 20211021

REACTIONS (4)
  - Mouth ulceration [Recovering/Resolving]
  - Skin exfoliation [Recovering/Resolving]
  - Cough [Unknown]
  - Productive cough [Unknown]

NARRATIVE: CASE EVENT DATE: 20211105
